FAERS Safety Report 5637324-6 (Version None)
Quarter: 2008Q1

REPORT INFORMATION
  Report Type: 
  Country: None (occurrence: None)
  Receive Date: 20080219
  Receipt Date: 20080206
  Transmission Date: 20080703
  Serious: Yes (Other)
  Sender: FDA-Public Use
  Company Number: CHPA2008US02687

PATIENT
  Age: 62 Year
  Sex: Female

DRUGS (1)
  1. TRANSDERM SCOP [Suspect]
     Indication: MOTION SICKNESS
     Dosage: 1 DF, CONT QW, TRANSDERMAL
     Route: 062
     Dates: start: 20080126, end: 20080201

REACTIONS (3)
  - ABASIA [None]
  - BEDRIDDEN [None]
  - INAPPROPRIATE SCHEDULE OF DRUG ADMINISTRATION [None]
